FAERS Safety Report 4938983-3 (Version None)
Quarter: 2006Q1

REPORT INFORMATION
  Report Type: 
  Country: None (occurrence: None)
  Receive Date: 20060309
  Receipt Date: 20060228
  Transmission Date: 20060701
  Serious: Yes (Hospitalization, Disabling)
  Sender: FDA-Public Use
  Company Number: CA-MERCK-0603CAN00011

PATIENT
  Sex: Female

DRUGS (2)
  1. VIOXX [Suspect]
     Indication: BACK PAIN
     Route: 048
     Dates: start: 20040101
  2. VIOXX [Suspect]
     Indication: SCIATICA
     Route: 048
     Dates: start: 20040101

REACTIONS (10)
  - ASTHENIA [None]
  - BACK DISORDER [None]
  - BRAIN DAMAGE [None]
  - CONCUSSION [None]
  - FALL [None]
  - MOTOR DYSFUNCTION [None]
  - NERVOUS SYSTEM DISORDER [None]
  - PAIN [None]
  - POST CONCUSSION SYNDROME [None]
  - SCIATICA [None]
